FAERS Safety Report 15801790 (Version 1)
Quarter: 2019Q1

REPORT INFORMATION
  Report Type: Spontaneous
  Country: US (occurrence: US)
  Receive Date: 20190109
  Receipt Date: 20190109
  Transmission Date: 20190417
  Serious: No
  Sender: FDA-Public Use
  Company Number: US-PFIZER INC-2019010248

PATIENT
  Sex: Female

DRUGS (1)
  1. CLINDAMYCIN HCL [Suspect]
     Active Substance: CLINDAMYCIN HYDROCHLORIDE
     Dosage: UNK
     Route: 048

REACTIONS (5)
  - Abdominal pain [Unknown]
  - Muscle spasms [Unknown]
  - Faeces discoloured [Unknown]
  - Abdominal distension [Unknown]
  - Diarrhoea [Unknown]
